FAERS Safety Report 4540625-6 (Version None)
Quarter: 2004Q4

REPORT INFORMATION
  Report Type: 
  Country: None (occurrence: None)
  Receive Date: 20041223
  Receipt Date: 20041006
  Transmission Date: 20050328
  Serious: No
  Sender: FDA-Public Use
  Company Number: US-JNJFOC-20041002882

PATIENT
  Age: 33 Year
  Sex: Female
  Weight: 48.9885 kg

DRUGS (5)
  1. ORTHO EVRA [Suspect]
     Indication: HORMONE REPLACEMENT THERAPY
     Dosage: 1 DOSE(S), 4 IN 4 WEEK, TRANSDERMAL
     Route: 062
     Dates: start: 20040729
  2. CYMBALTA (ALL OTHER THERAPEUTIC PRODUCTS) [Concomitant]
  3. FOCALIN (ALL OTHER THERAPEUTIC PRODUCTS) [Concomitant]
  4. ZOLOFT [Concomitant]
  5. TRAZADONE (TRAZODONE) [Concomitant]

REACTIONS (3)
  - HOT FLUSH [None]
  - METRORRHAGIA [None]
  - NIGHT SWEATS [None]
